FAERS Safety Report 25606214 (Version 3)
Quarter: 2025Q3

REPORT INFORMATION
  Report Type: Spontaneous
  Country: US (occurrence: US)
  Receive Date: 20250725
  Receipt Date: 20250812
  Transmission Date: 20251021
  Serious: No
  Sender: PFIZER
  Company Number: US-PFIZER INC-202400198772

PATIENT
  Age: 77 Year
  Sex: Female

DRUGS (1)
  1. LEVOXYL [Suspect]
     Active Substance: LEVOTHYROXINE SODIUM

REACTIONS (12)
  - Oral discomfort [Unknown]
  - Throat irritation [Unknown]
  - Oropharyngeal pain [Unknown]
  - Oral pain [Unknown]
  - Malaise [Unknown]
  - Asthenia [Unknown]
  - Impaired driving ability [Unknown]
  - Intentional product use issue [Unknown]
  - Intentional product misuse [Unknown]
  - Poor quality product administered [Unknown]
  - Product storage error [Unknown]
  - Drug ineffective [Unknown]
